FAERS Safety Report 21875648 (Version 1)
Quarter: 2023Q1

REPORT INFORMATION
  Report Type: Spontaneous
  Country: US (occurrence: US)
  Receive Date: 20230118
  Receipt Date: 20230118
  Transmission Date: 20230417
  Serious: Yes (Death, Life-Threatening, Hospitalization)
  Sender: FDA-Public Use
  Company Number: US-drreddys-LIT/USA/23/0159999

PATIENT
  Age: 51 Year
  Sex: Male

DRUGS (4)
  1. DEXAMETHASONE [Suspect]
     Active Substance: DEXAMETHASONE
     Indication: COVID-19 pneumonia
  2. DEXAMETHASONE [Suspect]
     Active Substance: DEXAMETHASONE
     Dosage: RESTARTED
     Route: 042
  3. CEFTRIAXONE [Suspect]
     Active Substance: CEFTRIAXONE
     Indication: COVID-19 pneumonia
     Dosage: A FIVE-DAY COURSE
  4. AZITHROMYCIN [Suspect]
     Active Substance: AZITHROMYCIN
     Indication: COVID-19 pneumonia
     Dosage: A FIVE-DAY COURSE

REACTIONS (10)
  - Bacteraemia [Fatal]
  - Large intestine perforation [Fatal]
  - COVID-19 pneumonia [Unknown]
  - Septic shock [Unknown]
  - Acute kidney injury [Unknown]
  - Haematochezia [Unknown]
  - Shock haemorrhagic [Unknown]
  - Gastrointestinal necrosis [Unknown]
  - Pulmonary embolism [Unknown]
  - Drug ineffective for unapproved indication [Unknown]
